FAERS Safety Report 15337049 (Version 2)
Quarter: 2018Q3

REPORT INFORMATION
  Report Type: Spontaneous
  Country: JP (occurrence: JP)
  Receive Date: 20180831
  Receipt Date: 20180925
  Transmission Date: 20181010
  Serious: Yes (Other)
  Sender: FDA-Public Use
  Company Number: JP-UCBSA-2018038771

PATIENT
  Age: 79 Year
  Sex: Male

DRUGS (6)
  1. DIAZEPAM. [Concomitant]
     Active Substance: DIAZEPAM
     Indication: SEIZURE
  2. VIMPAT [Suspect]
     Active Substance: LACOSAMIDE
     Dosage: 200 MG DAILY
     Route: 048
  3. VIMPAT [Suspect]
     Active Substance: LACOSAMIDE
     Indication: PARTIAL SEIZURES
     Dosage: UNK
     Route: 048
  4. DIAZEPAM. [Concomitant]
     Active Substance: DIAZEPAM
     Indication: PARTIAL SEIZURES
     Dosage: UNK
  5. FOSPHENYTOIN [Concomitant]
     Active Substance: FOSPHENYTOIN
     Indication: SEIZURE
  6. FOSPHENYTOIN [Concomitant]
     Active Substance: FOSPHENYTOIN
     Indication: PARTIAL SEIZURES
     Dosage: UNK

REACTIONS (5)
  - Urinary incontinence [Unknown]
  - Brain contusion [Unknown]
  - Subdural haematoma [Unknown]
  - Gait disturbance [Unknown]
  - Altered state of consciousness [Unknown]
